FAERS Safety Report 7506006-8 (Version None)
Quarter: 2011Q2

REPORT INFORMATION
  Report Type: 
  Country: None (occurrence: None)
  Receive Date: 20110526
  Receipt Date: 20110518
  Transmission Date: 20111010
  Serious: Yes (Hospitalization, Other)
  Sender: FDA-Public Use
  Company Number: PHBS2007JP11011

PATIENT
  Age: 10 Year
  Sex: Female

DRUGS (3)
  1. ADRENAL HORMONE PREPARATION [Concomitant]
     Route: 048
  2. NEORAL [Suspect]
     Indication: NEPHROTIC SYNDROME
     Route: 048
  3. STEROIDS NOS [Suspect]
     Indication: NEPHROTIC SYNDROME
     Route: 065

REACTIONS (6)
  - POSTERIOR REVERSIBLE ENCEPHALOPATHY SYNDROME [None]
  - RENAL FAILURE ACUTE [None]
  - BODY HEIGHT BELOW NORMAL [None]
  - PROTEINURIA [None]
  - FOCAL SEGMENTAL GLOMERULOSCLEROSIS [None]
  - OSTEONECROSIS [None]
